FAERS Safety Report 6656198-8 (Version None)
Quarter: 2010Q1

REPORT INFORMATION
  Report Type: 
  Country: None (occurrence: None)
  Receive Date: 20100326
  Receipt Date: 20100326
  Transmission Date: 20100710
  Serious: No
  Sender: FDA-Public Use
  Company Number: None

PATIENT
  Age: 83 Year
  Sex: Female
  Weight: 63.5036 kg

DRUGS (5)
  1. MONUROL [Suspect]
     Indication: URINARY TRACT INFECTION
     Dosage: THREE ONCE DAILY FOR 3 D PO
     Route: 048
     Dates: start: 20100315, end: 20100317
  2. CIPRO [Suspect]
     Indication: URINARY TRACT INFECTION
     Dosage: ONE DAILY PO
     Route: 048
     Dates: start: 20100309, end: 20100309
  3. MONUROL [Concomitant]
  4. CIPRO [Concomitant]
  5. BENADRYL [Concomitant]

REACTIONS (8)
  - AGGRESSION [None]
  - DYSPNOEA [None]
  - HEADACHE [None]
  - HYPOGLYCAEMIA [None]
  - HYPOTHYROIDISM [None]
  - MALAISE [None]
  - PRURITUS [None]
  - URTICARIA [None]
